FAERS Safety Report 6347808-3 (Version None)
Quarter: 2009Q3

REPORT INFORMATION
  Report Type: 
  Country: None (occurrence: None)
  Receive Date: 20090910
  Receipt Date: 20090901
  Transmission Date: 20100115
  Serious: Yes (Death)
  Sender: FDA-Public Use
  Company Number: B0567725A

PATIENT
  Sex: Male

DRUGS (2)
  1. RELENZA [Suspect]
     Indication: INFLUENZA
     Dosage: 10MG TWICE PER DAY
     Route: 055
     Dates: start: 20090316, end: 20090317
  2. ZYLORIC [Concomitant]
     Indication: GOUT
     Dosage: 200MG PER DAY
     Route: 048
     Dates: start: 20080707

REACTIONS (11)
  - ACUTE RESPIRATORY DISTRESS SYNDROME [None]
  - BRONCHOPNEUMONIA [None]
  - CARDIO-RESPIRATORY ARREST [None]
  - DISSEMINATED INTRAVASCULAR COAGULATION [None]
  - ILL-DEFINED DISORDER [None]
  - INFECTION [None]
  - MULTI-ORGAN FAILURE [None]
  - RENAL TUBULAR NECROSIS [None]
  - SEPSIS [None]
  - SEPTIC SHOCK [None]
  - VIRAEMIA [None]
